FAERS Safety Report 16914687 (Version 1)
Quarter: 2019Q4

REPORT INFORMATION
  Report Type: Spontaneous
  Country: MY (occurrence: MY)
  Receive Date: 20191014
  Receipt Date: 20191014
  Transmission Date: 20200122
  Serious: Yes (Hospitalization)
  Sender: FDA-Public Use
  Company Number: MY-PFIZER INC-2019437338

PATIENT
  Sex: Male

DRUGS (1)
  1. ZYVOX [Suspect]
     Active Substance: LINEZOLID
     Indication: WOUND INFECTION
     Dosage: UNK

REACTIONS (2)
  - Wound infection staphylococcal [Recovered/Resolved]
  - Therapeutic product effect incomplete [Recovered/Resolved]
